FAERS Safety Report 19120532 (Version 1)
Quarter: 2021Q2

REPORT INFORMATION
  Report Type: Spontaneous
  Country: US (occurrence: US)
  Receive Date: 20210409
  Receipt Date: 20210409
  Transmission Date: 20210717
  Serious: Yes (Hospitalization)
  Sender: FDA-Public Use
  Company Number: None

PATIENT
  Age: 61 Year
  Sex: Female

DRUGS (10)
  1. BREO ELLIPTA [Concomitant]
     Active Substance: FLUTICASONE FUROATE\VILANTEROL TRIFENATATE
  2. PROGESTERONE. [Concomitant]
     Active Substance: PROGESTERONE
  3. NP THYROID [Concomitant]
     Active Substance: LEVOTHYROXINE\LIOTHYRONINE
  4. SPRYCEL [Suspect]
     Active Substance: DASATINIB
     Indication: PHILADELPHIA POSITIVE CHRONIC MYELOID LEUKAEMIA
     Route: 048
     Dates: start: 20210311, end: 20210409
  5. CIPROFLOXACIN. [Concomitant]
     Active Substance: CIPROFLOXACIN
  6. HYDROXYUREA. [Concomitant]
     Active Substance: HYDROXYUREA
  7. AMOX/K CLAV [Concomitant]
     Active Substance: AMOXICILLIN\CLAVULANATE POTASSIUM
  8. ALLOPURINOL. [Concomitant]
     Active Substance: ALLOPURINOL
  9. CEFUROXIME. [Concomitant]
     Active Substance: CEFUROXIME
  10. ESTRADIOL. [Concomitant]
     Active Substance: ESTRADIOL

REACTIONS (2)
  - Therapy cessation [None]
  - Illness [None]

NARRATIVE: CASE EVENT DATE: 20210325
